FAERS Safety Report 17583800 (Version 1)
Quarter: 2020Q1

REPORT INFORMATION
  Report Type: Spontaneous
  Country: FR (occurrence: FR)
  Receive Date: 20200326
  Receipt Date: 20200326
  Transmission Date: 20200409
  Serious: Yes (Hospitalization)
  Sender: FDA-Public Use
  Company Number: FR-TEVA-2020-FR-1209075

PATIENT
  Age: 77 Year
  Sex: Female
  Weight: 57 kg

DRUGS (18)
  1. CYTARABINE. [Suspect]
     Active Substance: CYTARABINE
     Indication: LYMPHOMA
     Dosage: 2G/M2
     Route: 042
     Dates: start: 20191010, end: 20191010
  2. METFORMINE [Concomitant]
     Active Substance: METFORMIN HYDROCHLORIDE
  3. OXALIPLATIN. [Suspect]
     Active Substance: OXALIPLATIN
     Indication: LYMPHOMA
     Dosage: 100MG/M2
     Route: 042
     Dates: start: 20191009, end: 20191010
  4. ZELITREX [Concomitant]
     Active Substance: VALACYCLOVIR HYDROCHLORIDE
  5. SERTRALINE [Concomitant]
     Active Substance: SERTRALINE HYDROCHLORIDE
  6. AMIODARONE [Concomitant]
     Active Substance: AMIODARONE
  7. IPRATROPIUM (BROMURE D) MONOHYDRATE [Concomitant]
     Active Substance: IPRATROPIUM BROMIDE
  8. ZOPICLONE [Concomitant]
     Active Substance: ZOPICLONE
  9. MABTHERA [Suspect]
     Active Substance: RITUXIMAB
     Indication: LYMPHOMA
     Route: 042
     Dates: start: 20191009, end: 20191010
  10. NEUPRO [Concomitant]
     Active Substance: ROTIGOTINE
  11. DIFFU K [Concomitant]
     Active Substance: POTASSIUM CHLORIDE
  12. NICARDIPINE (CHLORHYDRATE DE) [Concomitant]
     Active Substance: NICARDIPINE HYDROCHLORIDE
  13. RACECADOTRIL [Concomitant]
     Active Substance: RACECADOTRIL
  14. SALBUTAMOL [Concomitant]
     Active Substance: ALBUTEROL
  15. NEOFORDEX 40 MG, COMPRIME [Suspect]
     Active Substance: DEXAMETHASONE ACETATE
     Indication: LYMPHOMA
     Dosage: 40 MG
     Route: 048
     Dates: start: 20191010, end: 20191014
  16. DIOSMECTITE [Concomitant]
     Active Substance: MONTMORILLONITE
  17. LEVOTHYROXINE SODIQUE [Concomitant]
     Active Substance: LEVOTHYROXINE SODIUM
  18. CANDESARTAN CILEXETIL. [Concomitant]
     Active Substance: CANDESARTAN CILEXETIL

REACTIONS (2)
  - Pyrexia [Recovered/Resolved]
  - Pancytopenia [Recovered/Resolved]

NARRATIVE: CASE EVENT DATE: 20191011
